FAERS Safety Report 21090829 (Version 1)
Quarter: 2022Q3

REPORT INFORMATION
  Report Type: Spontaneous
  Country: GB (occurrence: GB)
  Receive Date: 20220716
  Receipt Date: 20220716
  Transmission Date: 20221027
  Serious: Yes (Hospitalization, Other)
  Sender: FDA-Public Use
  Company Number: GB-MHRA-MED-202207031402542730-TGBJR

PATIENT
  Age: 37 Year
  Sex: Male

DRUGS (2)
  1. CIPROFLOXACIN [Suspect]
     Active Substance: CIPROFLOXACIN
     Indication: Pseudomonas bronchitis
     Dosage: 750 MILLIGRAM, TWO TIMES A DAY
     Route: 065
     Dates: start: 20220608, end: 20220617
  2. CIPROFLOXACIN [Suspect]
     Active Substance: CIPROFLOXACIN
     Indication: Pseudomonas bronchitis
     Dosage: 750 MILLIGRAM, TWO TIMES A DAY
     Route: 065
     Dates: start: 20220608, end: 20220617

REACTIONS (1)
  - Acute kidney injury [Recovering/Resolving]

NARRATIVE: CASE EVENT DATE: 20220617
